APPROVED DRUG PRODUCT: ISMELIN
Active Ingredient: GUANETHIDINE MONOSULFATE
Strength: EQ 10MG SULFATE
Dosage Form/Route: TABLET;ORAL
Application: N012329 | Product #001
Applicant: NOVARTIS PHARMACEUTICALS CORP
Approved: Approved Prior to Jan 1, 1982 | RLD: No | RS: No | Type: DISCN